FAERS Safety Report 4529523-1 (Version None)
Quarter: 2004Q4

REPORT INFORMATION
  Report Type: 
  Country: None (occurrence: None)
  Receive Date: 20041202
  Receipt Date: 20040929
  Transmission Date: 20050328
  Serious: No
  Sender: FDA-Public Use
  Company Number: 200420741BWH

PATIENT
  Sex: Male

DRUGS (2)
  1. LEVITRA [Suspect]
     Dosage: ORAL
     Route: 048
  2. BIAXIN [Concomitant]

REACTIONS (2)
  - FLUSHING [None]
  - INFLUENZA LIKE ILLNESS [None]
